FAERS Safety Report 5947519-X (Version None)
Quarter: 2008Q4

REPORT INFORMATION
  Report Type: 
  Country: None (occurrence: None)
  Receive Date: 20081110
  Receipt Date: 20081031
  Transmission Date: 20090506
  Serious: Yes (Other)
  Sender: FDA-Public Use
  Company Number: PHHY2008BR26870

PATIENT
  Sex: Female
  Weight: 81 kg

DRUGS (1)
  1. FORASEQ [Suspect]
     Indication: ASTHMA
     Dosage: 1 DF, BID

REACTIONS (2)
  - TACHYCARDIA [None]
  - VOMITING [None]
